FAERS Safety Report 21499747 (Version 3)
Quarter: 2022Q4

REPORT INFORMATION
  Report Type: Spontaneous
  Country: US (occurrence: US)
  Receive Date: 20221024
  Receipt Date: 20221229
  Transmission Date: 20230113
  Serious: No
  Sender: FDA-Public Use
  Company Number: US-PFIZER INC-PV202200086075

PATIENT
  Age: 20 Year
  Sex: Female

DRUGS (1)
  1. SOMAVERT [Suspect]
     Active Substance: PEGVISOMANT
     Indication: Pituitary tumour
     Dosage: 10 MG, DAILY
     Route: 058
     Dates: start: 202206

REACTIONS (2)
  - Injection site swelling [Unknown]
  - Off label use [Unknown]
